FAERS Safety Report 11899361 (Version 1)
Quarter: 2016Q1

REPORT INFORMATION
  Report Type: Spontaneous
  Country: US (occurrence: US)
  Receive Date: 20160108
  Receipt Date: 20160108
  Transmission Date: 20160526
  Serious: No
  Sender: FDA-Public Use
  Company Number: US-SA-2015SA221361

PATIENT
  Sex: Male

DRUGS (3)
  1. SOLOSTAR [Concomitant]
     Active Substance: DEVICE
     Dosage: DOSE: 14-16 UNITS
     Dates: start: 2012
  2. AFREZZA [Suspect]
     Active Substance: INSULIN HUMAN
     Indication: TYPE 2 DIABETES MELLITUS
     Dosage: DOSE STRENGTH: 4 UNITS
     Route: 065
     Dates: start: 20151214
  3. LANTUS SOLOSTAR [Concomitant]
     Active Substance: INSULIN GLARGINE
     Indication: TYPE 2 DIABETES MELLITUS
     Dosage: DOSE: 14-16 UNITS
     Dates: start: 2012

REACTIONS (3)
  - Product preparation error [Unknown]
  - Drug ineffective [Unknown]
  - Blood glucose abnormal [Not Recovered/Not Resolved]
